FAERS Safety Report 15112409 (Version 7)
Quarter: 2018Q4

REPORT INFORMATION
  Report Type: Report from Study
  Country: BE (occurrence: BE)
  Receive Date: 20180705
  Receipt Date: 20181102
  Transmission Date: 20190204
  Serious: Yes (Hospitalization)
  Sender: FDA-Public Use
  Company Number: BE-BAYER-2018-111289

PATIENT
  Age: 70 Year
  Sex: Male

DRUGS (11)
  1. FLECAINIDE [Concomitant]
     Active Substance: FLECAINIDE
     Indication: ARRHYTHMIA
     Dosage: 200 MG
     Dates: start: 20180629
  2. EMCONCOR [Concomitant]
     Active Substance: BISOPROLOL FUMARATE
     Dosage: 2,5
     Dates: start: 20180629
  3. URSOFALK [Concomitant]
     Active Substance: URSODIOL
     Dosage: 250 MG, TID
  4. BEFACT [Concomitant]
     Dosage: UNK
     Dates: start: 20181012
  5. STIVARGA [Suspect]
     Active Substance: REGORAFENIB
     Indication: COLORECTAL CANCER
     Dosage: DAILY DOSE 120 MG
     Dates: start: 20180606, end: 20180612
  6. STIVARGA [Suspect]
     Active Substance: REGORAFENIB
     Indication: COLORECTAL CANCER
     Dosage: DAILY DOSE 120 MG
     Dates: start: 20180914, end: 201809
  7. STIVARGA [Suspect]
     Active Substance: REGORAFENIB
     Indication: COLORECTAL CANCER
     Dosage: DAILY DOSE 120 MG
     Dates: start: 20180919
  8. XARELTO [Concomitant]
     Active Substance: RIVAROXABAN
     Indication: THROMBOSIS PROPHYLAXIS
     Dosage: 20 MG
  9. STIVARGA [Suspect]
     Active Substance: REGORAFENIB
     Indication: COLORECTAL CANCER
     Dosage: DAILY DOSE 80 MG
     Dates: start: 20180907, end: 201809
  10. RANITIDINE. [Concomitant]
     Active Substance: RANITIDINE
     Dosage: 150 MG, BID
  11. LONSURF [Concomitant]
     Active Substance: TIPIRACIL HYDROCHLORIDE\TRIFLURIDINE
     Dosage: UNK
     Dates: start: 20180618, end: 20180824

REACTIONS (16)
  - Musculoskeletal pain [Not Recovered/Not Resolved]
  - Anaemia [None]
  - Fatigue [Recovering/Resolving]
  - Musculoskeletal pain [Not Recovered/Not Resolved]
  - Asthenia [Not Recovered/Not Resolved]
  - Lacrimation increased [Recovering/Resolving]
  - Blood urine present [None]
  - Pain in extremity [None]
  - Muscle spasms [Not Recovered/Not Resolved]
  - Cardiac disorder [None]
  - Rash [None]
  - Heart rate increased [Unknown]
  - Heart rate irregular [None]
  - Dysphonia [None]
  - Mucosal inflammation [None]
  - Urinary tract infection [None]

NARRATIVE: CASE EVENT DATE: 2018
